FAERS Safety Report 19432087 (Version 2)
Quarter: 2022Q1

REPORT INFORMATION
  Report Type: Other
  Country: GB (occurrence: GB)
  Receive Date: 20210618
  Receipt Date: 20220208
  Transmission Date: 20220423
  Serious: Yes (Disabling)
  Sender: FDA-Public Use
  Company Number: GB-MACLEODS PHARMA UK LTD-MAC2021031545

PATIENT

DRUGS (2)
  1. ARIPIPRAZOLE [Suspect]
     Active Substance: ARIPIPRAZOLE
     Indication: Ill-defined disorder
     Dosage: 10 MILLIGRAM
     Route: 048
     Dates: start: 20210527
  2. CETIRIZINE [Concomitant]
     Active Substance: CETIRIZINE HYDROCHLORIDE
     Indication: Ill-defined disorder
     Dosage: UNK
     Route: 065

REACTIONS (3)
  - Adverse drug reaction [Not Recovered/Not Resolved]
  - Insomnia [Not Recovered/Not Resolved]
  - Restlessness [Unknown]

NARRATIVE: CASE EVENT DATE: 20210527
